FAERS Safety Report 12314264 (Version 1)
Quarter: 2016Q2

REPORT INFORMATION
  Report Type: Spontaneous
  Country: BR (occurrence: BR)
  Receive Date: 20160428
  Receipt Date: 20160428
  Transmission Date: 20160815
  Serious: Yes (Death)
  Sender: FDA-Public Use
  Company Number: BR-PFIZER INC-2012068348

PATIENT
  Age: 86 Year
  Sex: Female
  Weight: 72 kg

DRUGS (4)
  1. FRONTAL [Suspect]
     Active Substance: ALPRAZOLAM
     Indication: SLEEP DISORDER
  2. ZOLOFT [Suspect]
     Active Substance: SERTRALINE HYDROCHLORIDE
     Indication: DEPRESSION
     Dosage: 50 MG, 1X/DAY
     Route: 048
     Dates: start: 2011
  3. FRONTAL [Suspect]
     Active Substance: ALPRAZOLAM
     Indication: DEPRESSION
     Dosage: 1 MG, 1X/DAY, (HALF TABLET OF STRENGTH 2MG)
     Route: 048
     Dates: start: 2001
  4. PREDNISONE. [Concomitant]
     Active Substance: PREDNISONE
     Indication: RESPIRATORY TRACT INFLAMMATION
     Dosage: HALF TABLET/DAY
     Route: 048
     Dates: start: 2011

REACTIONS (2)
  - Lung neoplasm malignant [Fatal]
  - Poor quality sleep [Unknown]
